FAERS Safety Report 12378227 (Version 1)
Quarter: 2016Q2

REPORT INFORMATION
  Report Type: Spontaneous
  Country: US (occurrence: US)
  Receive Date: 20160517
  Receipt Date: 20160517
  Transmission Date: 20160815
  Serious: No
  Sender: FDA-Public Use
  Company Number: US-JNJFOC-20160409083

PATIENT
  Age: 24 Month
  Sex: Female

DRUGS (1)
  1. INFANTS TYLENOL [Suspect]
     Active Substance: ACETAMINOPHEN
     Indication: ACCIDENTAL EXPOSURE TO PRODUCT
     Dosage: ONCE. DRANK??ABOUT 15 MLS TO 3/4 OF THE BOTTLE.
     Route: 048
     Dates: start: 20160408

REACTIONS (2)
  - Accidental exposure to product by child [Unknown]
  - Overdose [Unknown]
